FAERS Safety Report 5551681-0 (Version None)
Quarter: 2007Q4

REPORT INFORMATION
  Report Type: 
  Country: None (occurrence: None)
  Receive Date: 20071212
  Receipt Date: 20071130
  Transmission Date: 20080405
  Serious: Yes (Life-Threatening, Other)
  Sender: FDA-Public Use
  Company Number: JP-PFIZER INC-2007088465

PATIENT
  Sex: Male
  Weight: 51.5 kg

DRUGS (2)
  1. SOLU-MEDROL [Suspect]
     Indication: ACUTE RESPIRATORY DISTRESS SYNDROME
     Dosage: FREQ:FREQUENCY: QD
     Route: 042
  2. PREDONINE [Concomitant]
     Route: 048
     Dates: start: 20050316, end: 20050408

REACTIONS (1)
  - PNEUMONIA CYTOMEGALOVIRAL [None]
